FAERS Safety Report 4439773-0 (Version None)
Quarter: 2004Q3

REPORT INFORMATION
  Report Type: 
  Country: None (occurrence: None)
  Receive Date: 20040831
  Receipt Date: 20040819
  Transmission Date: 20050211
  Serious: Yes (Life-Threatening, Hospitalization)
  Sender: FDA-Public Use
  Company Number: 2004-03686

PATIENT
  Age: 58 Year
  Sex: Female

DRUGS (2)
  1. NEFAZODONE HCL [Suspect]
     Indication: DEPRESSION
     Dosage: 1 TABLET BID ORAL
     Route: 048
  2. GLIPIZIDE [Concomitant]

REACTIONS (2)
  - SYNCOPE [None]
  - TORSADE DE POINTES [None]
